FAERS Safety Report 13567725 (Version 1)
Quarter: 2020Q3

REPORT INFORMATION
  Report Type: Report from Study
  Country: IT (occurrence: IT)
  Receive Date: 20170522
  Receipt Date: 20170522
  Transmission Date: 20201105
  Serious: Yes (Hospitalization)
  Sender: FDA-Public Use
  Company Number: IT-JNJFOC-20170516506

PATIENT
  Age: 57 Year
  Sex: Female

DRUGS (9)
  1. LANTUS [Concomitant]
     Active Substance: INSULIN GLARGINE
     Dosage: DEPEND OF GLYCEMIC VALUE
     Route: 065
  2. TRITEC [Concomitant]
     Active Substance: RANITIDINE BISMUTH CITRATE
     Route: 065
  3. ISOLYTE [Concomitant]
     Route: 065
     Dates: start: 20160906, end: 20160909
  4. MICARDIS [Concomitant]
     Active Substance: TELMISARTAN
     Route: 065
  5. PLD [Suspect]
     Active Substance: DOXORUBICIN HYDROCHLORIDE
     Route: 042
  6. PLD [Suspect]
     Active Substance: DOXORUBICIN HYDROCHLORIDE
     Indication: OVARIAN CANCER
     Route: 042
     Dates: start: 20160830, end: 20160830
  7. PANTORC [Concomitant]
     Active Substance: PANTOPRAZOLE SODIUM
     Route: 065
  8. HUMALOG [Concomitant]
     Active Substance: INSULIN LISPRO
     Dosage: DEPEND OF GYCEMIC VALUE
     Route: 065
  9. CERNEVIT [Concomitant]
     Active Substance: VITAMINS
     Route: 065
     Dates: start: 20160906, end: 20160909

REACTIONS (2)
  - Vomiting [Recovered/Resolved]
  - Eating disorder [Recovered/Resolved]

NARRATIVE: CASE EVENT DATE: 20160920
